FAERS Safety Report 22332169 (Version 1)
Quarter: 2023Q2

REPORT INFORMATION
  Report Type: Spontaneous
  Country: US (occurrence: None)
  Receive Date: 20230517
  Receipt Date: 20230517
  Transmission Date: 20230722
  Serious: Yes (Hospitalization, Other)
  Sender: FDA-Public Use
  Company Number: US-ROCHE-3351153

PATIENT
  Age: 48 Year
  Sex: Female
  Weight: 88.53 kg

DRUGS (7)
  1. XOLAIR [Suspect]
     Active Substance: OMALIZUMAB
     Indication: Urticaria
     Dosage: 2 INJECTIONS
     Route: 030
     Dates: start: 20200730
  2. XOLAIR [Suspect]
     Active Substance: OMALIZUMAB
     Indication: Asthma
  3. XOLAIR [Suspect]
     Active Substance: OMALIZUMAB
     Indication: Nasal polyps
  4. PREDNISONE [Suspect]
     Active Substance: PREDNISONE
     Indication: Allergy to metals
     Dosage: TAKEN 13, 7, 1 HOURS BEFORE XOLAIR INJECTION
     Route: 048
     Dates: start: 20200730, end: 2022
  5. PREDNISONE [Suspect]
     Active Substance: PREDNISONE
     Dosage: TAKEN 13, 7, 1 HOURS BEFORE XOLAIR INJECTION
     Route: 048
     Dates: start: 2022
  6. BENADRYL [Concomitant]
     Active Substance: DIPHENHYDRAMINE HYDROCHLORIDE
     Indication: Allergy to metals
     Route: 048
     Dates: start: 20200730
  7. BENADRYL [Concomitant]
     Active Substance: DIPHENHYDRAMINE HYDROCHLORIDE
     Indication: Premedication

REACTIONS (6)
  - Myocardial infarction [Recovered/Resolved]
  - Diabetes mellitus [Not Recovered/Not Resolved]
  - Steroid diabetes [Not Recovered/Not Resolved]
  - Troponin increased [Unknown]
  - Off label use [Unknown]
  - Allergy to metals [Unknown]

NARRATIVE: CASE EVENT DATE: 20200730
